FAERS Safety Report 14873980 (Version 2)
Quarter: 2018Q2

REPORT INFORMATION
  Report Type: Report from Study
  Country: MY (occurrence: MY)
  Receive Date: 20180510
  Receipt Date: 20180514
  Transmission Date: 20180711
  Serious: Yes (Death, Other)
  Sender: FDA-Public Use
  Company Number: PHHY2018MY061757

PATIENT
  Age: 64 Year
  Sex: Female

DRUGS (6)
  1. METFORMIN [Concomitant]
     Active Substance: METFORMIN HYDROCHLORIDE
     Indication: PRODUCT USED FOR UNKNOWN INDICATION
     Dosage: 500 MG, BID
     Route: 065
  2. TASIGNA [Suspect]
     Active Substance: NILOTINIB
     Indication: CHRONIC MYELOID LEUKAEMIA
     Dosage: 400 MG, BID
     Route: 065
     Dates: start: 20160630, end: 20171214
  3. ARA-C [Concomitant]
     Active Substance: CYTARABINE
     Indication: PRODUCT USED FOR UNKNOWN INDICATION
     Route: 065
  4. ENALAPRIL [Concomitant]
     Active Substance: ENALAPRIL
     Indication: PRODUCT USED FOR UNKNOWN INDICATION
     Dosage: 5 MG, QD
     Route: 065
  5. CYTOSINE ARABINOSIDE [Concomitant]
     Active Substance: CYTARABINE
     Indication: CHEMOTHERAPY
     Route: 065
  6. DAUNORUBICIN [Concomitant]
     Active Substance: DAUNORUBICIN
     Indication: CHEMOTHERAPY
     Route: 065

REACTIONS (8)
  - Cerebellar haemorrhage [Fatal]
  - Chronic myeloid leukaemia [Unknown]
  - Neutropenic sepsis [Fatal]
  - Leukocytosis [Not Recovered/Not Resolved]
  - Blast cells present [Not Recovered/Not Resolved]
  - Malignant neoplasm progression [Unknown]
  - Thrombocytopenia [Not Recovered/Not Resolved]
  - Chronic myeloid leukaemia transformation [Not Recovered/Not Resolved]

NARRATIVE: CASE EVENT DATE: 20180111
